FAERS Safety Report 19198615 (Version 1)
Quarter: 2021Q2

REPORT INFORMATION
  Report Type: Spontaneous
  Country: US (occurrence: US)
  Receive Date: 20210429
  Receipt Date: 20210429
  Transmission Date: 20210717
  Serious: Yes (Other)
  Sender: FDA-Public Use
  Company Number: US-BAUSCH-BL-2021-013813

PATIENT
  Age: 43 Year
  Sex: Male

DRUGS (1)
  1. PENICILLAMINE [Suspect]
     Active Substance: PENICILLAMINE
     Indication: HEPATO-LENTICULAR DEGENERATION
     Dosage: STARTED WHEN THE PATIENT WAS 12 YEARS OLD
     Route: 065

REACTIONS (1)
  - Bone density decreased [Not Recovered/Not Resolved]
